FAERS Safety Report 5958165-6 (Version None)
Quarter: 2008Q4

REPORT INFORMATION
  Report Type: 
  Country: None (occurrence: None)
  Receive Date: 20081119
  Receipt Date: 20081112
  Transmission Date: 20090506
  Serious: Yes (Hospitalization)
  Sender: FDA-Public Use
  Company Number: TR-ABBOTT-08P-161-0488166-00

PATIENT
  Age: 31 Year
  Sex: Male

DRUGS (2)
  1. CYCLOSPORINE [Suspect]
     Indication: BEHCET'S SYNDROME
     Dosage: 4 MG/KG/DAY
  2. CYCLOSPORINE [Suspect]
     Indication: UVEITIS

REACTIONS (2)
  - CONFUSIONAL STATE [None]
  - EPILEPSY [None]
